FAERS Safety Report 6161365-6 (Version None)
Quarter: 2009Q2

REPORT INFORMATION
  Report Type: 
  Country: None (occurrence: None)
  Receive Date: 20090421
  Receipt Date: 20071121
  Transmission Date: 20091009
  Serious: Yes (Hospitalization, Other)
  Sender: FDA-Public Use
  Company Number: US-ASTRAZENECA-2007UW18300

PATIENT
  Age: 36 Year
  Sex: Male
  Weight: 95.3 kg

DRUGS (45)
  1. SEROQUEL [Suspect]
     Indication: SLEEP DISORDER
     Route: 048
     Dates: start: 20031015, end: 20060810
  2. SEROQUEL [Suspect]
     Indication: INSOMNIA
     Route: 048
     Dates: start: 20031015, end: 20060810
  3. SEROQUEL [Suspect]
     Indication: ANXIETY
     Route: 048
     Dates: start: 20031015, end: 20060810
  4. SEROQUEL [Suspect]
     Indication: NERVOUS SYSTEM DISORDER
     Route: 048
     Dates: start: 20031015, end: 20060810
  5. SEROQUEL [Suspect]
     Dosage: 50 MG TO 1200 MG
     Route: 048
     Dates: start: 20031015
  6. SEROQUEL [Suspect]
     Dosage: 50 MG TO 1200 MG
     Route: 048
     Dates: start: 20031015
  7. SEROQUEL [Suspect]
     Dosage: 50 MG TO 1200 MG
     Route: 048
     Dates: start: 20031015
  8. SEROQUEL [Suspect]
     Dosage: 50 MG TO 1200 MG
     Route: 048
     Dates: start: 20031015
  9. LEXAPRO [Concomitant]
  10. RANITIDINE [Concomitant]
  11. GEMFIBROZIL [Concomitant]
  12. NEXIUM [Concomitant]
  13. AMBIEN [Concomitant]
  14. ACCOLATE [Concomitant]
  15. HYDROCHLOROTHIAZIDE [Concomitant]
  16. DEPAKOTE [Concomitant]
  17. ROBAXIN [Concomitant]
  18. FOLIC ACID [Concomitant]
  19. ALBUTEROL [Concomitant]
  20. DIPHENHYDRAMINE HCL [Concomitant]
  21. FLURAZEPAM [Concomitant]
  22. COMBIVENT [Concomitant]
  23. TRAZODONE [Concomitant]
  24. FLONASE [Concomitant]
  25. ACETAMINOPHEN AND HYDROCODONE BITARTRATE [Concomitant]
  26. DEPAKENE [Concomitant]
  27. NAPROSYN [Concomitant]
  28. WELLBUTRIN [Concomitant]
  29. CLONAZEPAM [Concomitant]
  30. PROMETHAZINE [Concomitant]
  31. ASTELIN [Concomitant]
  32. ADVAIR DISKUS 100/50 [Concomitant]
  33. ZANTAC [Concomitant]
  34. CLARITIN [Concomitant]
  35. METOPROLOL SUCCINATE [Concomitant]
  36. SINGULAIR [Concomitant]
  37. KLONOPIN [Concomitant]
  38. LORCET-HD [Concomitant]
  39. ATIVAN [Concomitant]
  40. VISTARIL [Concomitant]
  41. CELEBREX [Concomitant]
  42. ULTRAM [Concomitant]
  43. ALLEGRA [Concomitant]
  44. PROTONIX [Concomitant]
  45. OXYCODONE HCL [Concomitant]

REACTIONS (33)
  - AFFECTIVE DISORDER [None]
  - ALCOHOL POISONING [None]
  - ALCOHOLISM [None]
  - ANTISOCIAL BEHAVIOUR [None]
  - ANXIETY [None]
  - BACK PAIN [None]
  - BIPOLAR DISORDER [None]
  - CHEST PAIN [None]
  - CHRONIC OBSTRUCTIVE PULMONARY DISEASE [None]
  - CHRONIC SINUSITIS [None]
  - CONVERSION DISORDER [None]
  - DRUG DEPENDENCE [None]
  - DYSPNOEA [None]
  - EMPHYSEMA [None]
  - FACTITIOUS DISORDER [None]
  - GASTROOESOPHAGEAL REFLUX DISEASE [None]
  - HYPERCHOLESTEROLAEMIA [None]
  - HYPERLIPIDAEMIA [None]
  - HYPERTENSION [None]
  - INSOMNIA [None]
  - LIPIDS INCREASED [None]
  - MAJOR DEPRESSION [None]
  - MUSCLE SPASMS [None]
  - OBESITY [None]
  - OSTEOARTHRITIS [None]
  - PALPITATIONS [None]
  - PANCREATITIS CHRONIC [None]
  - PANIC DISORDER [None]
  - PANIC DISORDER WITH AGORAPHOBIA [None]
  - PARANOID PERSONALITY DISORDER [None]
  - PEPTIC ULCER [None]
  - POLYSUBSTANCE DEPENDENCE [None]
  - SUICIDAL IDEATION [None]
